FAERS Safety Report 10158272 (Version 2)
Quarter: 2014Q2

REPORT INFORMATION
  Report Type: Report from Study
  Country: JP (occurrence: JP)
  Receive Date: 20140507
  Receipt Date: 20140604
  Transmission Date: 20141212
  Serious: Yes (Hospitalization, Disabling)
  Sender: FDA-Public Use
  Company Number: JP-B.I. PHARMACEUTICALS,INC./RIDGEFIELD-2014-BI-19566NB

PATIENT
  Age: 66 Year
  Sex: Male
  Weight: 60 kg

DRUGS (12)
  1. PRAZAXA [Suspect]
     Indication: CEREBROVASCULAR ACCIDENT PROPHYLAXIS
     Dosage: 150 MG
     Route: 048
     Dates: start: 20131129
  2. LYRICA [Suspect]
     Indication: ADVERSE EVENT
     Dosage: 75 MG
     Route: 048
     Dates: start: 20131225
  3. NEXIUM [Concomitant]
     Indication: PROPHYLAXIS
     Dosage: 20 MG
     Route: 048
     Dates: start: 20131129
  4. FASTIC [Concomitant]
     Dosage: 3DF
     Route: 048
  5. JANUVIA [Concomitant]
     Dosage: 50 MG
     Route: 048
     Dates: start: 20131201
  6. MICOMBI [Concomitant]
     Dosage: 1DF
     Route: 048
     Dates: start: 20131201
  7. CRESTOR [Concomitant]
     Dosage: 2.5 MG
     Route: 048
     Dates: start: 20131201
  8. ALLOPURINOL [Concomitant]
     Dosage: 200 MG
     Route: 048
     Dates: start: 20131201
  9. RADICUT [Concomitant]
     Dosage: 60 MG
     Route: 042
     Dates: start: 20131129, end: 20131212
  10. SOLDEM 3AG [Concomitant]
     Dosage: 1000 ML
     Route: 042
     Dates: start: 20131129, end: 20131202
  11. SOLDEM 3AG [Concomitant]
     Dosage: 1000 ML
     Route: 042
     Dates: start: 20140110, end: 20140111
  12. LACTEC [Concomitant]
     Dosage: 1000 ML
     Route: 042
     Dates: start: 20140109, end: 20140109

REACTIONS (5)
  - Embolic stroke [Unknown]
  - Cervicobrachial syndrome [Not Recovered/Not Resolved]
  - Depression [Recovered/Resolved]
  - Depressed level of consciousness [Recovered/Resolved]
  - Fall [Recovered/Resolved]
